FAERS Safety Report 5158650-3 (Version None)
Quarter: 2006Q4

REPORT INFORMATION
  Report Type: 
  Country: None (occurrence: None)
  Receive Date: 20061128
  Receipt Date: 20061116
  Transmission Date: 20070319
  Serious: Yes (Hospitalization)
  Sender: FDA-Public Use
  Company Number: US-ELI_LILLY_AND_COMPANY-US200611003924

PATIENT
  Age: 46 Year
  Sex: Female

DRUGS (1)
  1. HUMULIN 70/30 [Suspect]
     Indication: DIABETES MELLITUS
     Dates: end: 20060601

REACTIONS (7)
  - ASTHENIA [None]
  - GAIT DISTURBANCE [None]
  - GASTRIC DISORDER [None]
  - HEADACHE [None]
  - INFECTION [None]
  - RASH [None]
  - VOMITING [None]
